FAERS Safety Report 5863139-X (Version None)
Quarter: 2008Q3

REPORT INFORMATION
  Report Type: 
  Country: None (occurrence: None)
  Receive Date: 20080828
  Receipt Date: 20080819
  Transmission Date: 20090109
  Serious: Yes (Other)
  Sender: FDA-Public Use
  Company Number: PH-JNJFOC-20080804010

PATIENT
  Age: 14 Year
  Sex: Female

DRUGS (1)
  1. RISPERDAL [Suspect]
     Indication: AGGRESSION
     Route: 065

REACTIONS (2)
  - HYPERTENSION [None]
  - WEIGHT INCREASED [None]
